FAERS Safety Report 4854232-9 (Version None)
Quarter: 2005Q4

REPORT INFORMATION
  Report Type: 
  Country: None (occurrence: None)
  Receive Date: 20051212
  Receipt Date: 20051205
  Transmission Date: 20060501
  Serious: No
  Sender: FDA-Public Use
  Company Number: THYM-10804

PATIENT
  Age: 54 Year
  Sex: Female

DRUGS (5)
  1. THYMOGLOBULIN [Suspect]
     Indication: HEART TRANSPLANT
     Dosage: 1.5 MG/KG QD IV
     Route: 042
     Dates: start: 20051107, end: 20051108
  2. THYMOGLOBULIN [Suspect]
     Indication: HEART TRANSPLANT
     Dosage: 0.75 MG/KG QD IV
     Route: 042
     Dates: start: 20051109, end: 20051109
  3. BENADRYL [Concomitant]
  4. TYLENOL [Concomitant]
  5. STEROIDS [Concomitant]

REACTIONS (3)
  - FLUSHING [None]
  - HYPOXIA [None]
  - TACHYCARDIA [None]
